FAERS Safety Report 10098766 (Version 1)
Quarter: 2014Q2

REPORT INFORMATION
  Report Type: Spontaneous
  Country: PT (occurrence: PT)
  Receive Date: 20140423
  Receipt Date: 20140423
  Transmission Date: 20141212
  Serious: Yes (Hospitalization, Other)
  Sender: FDA-Public Use
  Company Number: PT-CELGENEUS-130-21880-14041718

PATIENT
  Age: 70 Year
  Sex: Female

DRUGS (9)
  1. REVLIMID [Suspect]
     Indication: PLASMA CELL MYELOMA
     Route: 048
     Dates: start: 201007
  2. REVLIMID [Suspect]
     Dosage: 25 MILLIGRAM
     Route: 048
     Dates: start: 201301
  3. REVLIMID [Suspect]
     Dosage: 15 MILLIGRAM
     Route: 048
  4. REVLIMID [Suspect]
     Dosage: 10 MILLIGRAM
     Route: 048
  5. DEXAMETHASONE [Concomitant]
     Indication: PLASMA CELL MYELOMA
     Route: 065
     Dates: start: 200402, end: 200404
  6. DEXAMETHASONE [Concomitant]
     Route: 065
     Dates: start: 201004, end: 201005
  7. DEXAMETHASONE [Concomitant]
     Route: 065
     Dates: start: 201007
  8. DEXAMETHASONE [Concomitant]
     Route: 065
     Dates: start: 201301
  9. DEXAMETHASONE [Concomitant]
     Dosage: 2.8571 MILLIGRAM
     Route: 065

REACTIONS (12)
  - Gait disturbance [Unknown]
  - Anxiety [Unknown]
  - Pneumonia [Unknown]
  - Rash [Unknown]
  - Platelet count decreased [Unknown]
  - Hyperhidrosis [Unknown]
  - Somnolence [Unknown]
  - Asthenia [Unknown]
  - Generalised erythema [Unknown]
  - Petechiae [Unknown]
  - Rash [Unknown]
  - Insomnia [Unknown]
